FAERS Safety Report 9236792 (Version 1)
Quarter: 2013Q2

REPORT INFORMATION
  Report Type: Spontaneous
  Country: DE (occurrence: DE)
  Receive Date: 20130417
  Receipt Date: 20130417
  Transmission Date: 20140414
  Serious: Yes (Hospitalization)
  Sender: FDA-Public Use
  Company Number: DE-ELI_LILLY_AND_COMPANY-DE201304002570

PATIENT
  Sex: Female

DRUGS (3)
  1. FORSTEO [Suspect]
     Indication: OSTEOPOROSIS
     Dosage: UNK, QD
     Route: 058
     Dates: start: 20111012
  2. VIGANTOLETTEN [Concomitant]
  3. METEX [Concomitant]

REACTIONS (3)
  - Gastrointestinal inflammation [Not Recovered/Not Resolved]
  - Hair disorder [Not Recovered/Not Resolved]
  - Acne [Not Recovered/Not Resolved]
